FAERS Safety Report 8558396-5 (Version None)
Quarter: 2012Q3

REPORT INFORMATION
  Report Type: 
  Country: None (occurrence: None)
  Receive Date: 20120801
  Receipt Date: 20120628
  Transmission Date: 20120928
  Serious: No
  Sender: FDA-Public Use
  Company Number: US-ASTRAZENECA-2011SE15653

PATIENT
  Age: 59 Year
  Sex: Female

DRUGS (1)
  1. CRESTOR [Suspect]
     Route: 048

REACTIONS (8)
  - PALPITATIONS [None]
  - VISUAL IMPAIRMENT [None]
  - CHEST PAIN [None]
  - VISION BLURRED [None]
  - MALAISE [None]
  - HYPOKINESIA [None]
  - PAIN IN EXTREMITY [None]
  - HEADACHE [None]
